FAERS Safety Report 16737334 (Version 1)
Quarter: 2019Q3

REPORT INFORMATION
  Report Type: Spontaneous
  Country: DE (occurrence: DE)
  Receive Date: 20190823
  Receipt Date: 20190823
  Transmission Date: 20191005
  Serious: Yes (Other)
  Sender: FDA-Public Use
  Company Number: DE-PERRIGO-19DE009969

PATIENT
  Sex: Female

DRUGS (3)
  1. ORLISTAT. [Concomitant]
     Active Substance: ORLISTAT
     Indication: OBESITY
     Dosage: UNK (1ST TRIMESTER)
     Route: 065
  2. ACETAMINOPHEN. [Suspect]
     Active Substance: ACETAMINOPHEN
     Indication: HEADACHE
     Dosage: 200-400 MG, QD
     Route: 048
  3. ACETYLSALICYLIC ACID [Concomitant]
     Active Substance: ASPIRIN
     Indication: PRODUCT USED FOR UNKNOWN INDICATION
     Dosage: UNK
     Route: 065

REACTIONS (2)
  - Oligohydramnios [Recovered/Resolved]
  - Placental insufficiency [Recovered/Resolved]
